FAERS Safety Report 7414545-3 (Version None)
Quarter: 2011Q2

REPORT INFORMATION
  Report Type: 
  Country: None (occurrence: None)
  Receive Date: 20110414
  Receipt Date: 20110405
  Transmission Date: 20111010
  Serious: Yes (Hospitalization)
  Sender: FDA-Public Use
  Company Number: US-SANOFI-AVENTIS-2011SA021832

PATIENT
  Age: 57 Year
  Sex: Female
  Weight: 89.81 kg

DRUGS (9)
  1. VICODIN [Concomitant]
  2. VALIUM [Concomitant]
  3. HUMIRA [Suspect]
     Indication: RHEUMATOID ARTHRITIS
     Route: 058
     Dates: start: 20080101, end: 20090601
  4. ALL OTHER THERAPEUTIC PRODUCTS [Concomitant]
  5. ALL OTHER THERAPEUTIC PRODUCTS [Concomitant]
     Indication: ASTHMA
  6. CO-DIOVAN [Concomitant]
  7. LEFLUNOMIDE [Concomitant]
  8. PLAQUENIL [Suspect]
     Indication: RHEUMATOID ARTHRITIS
     Route: 065
     Dates: start: 20090101, end: 20090601
  9. HUMIRA [Suspect]
     Route: 058

REACTIONS (17)
  - INJECTION SITE PAIN [None]
  - ARTHRALGIA [None]
  - LUMBAR VERTEBRAL FRACTURE [None]
  - DRUG HYPERSENSITIVITY [None]
  - PRURITUS [None]
  - MUSCULOSKELETAL STIFFNESS [None]
  - BACK PAIN [None]
  - WRIST FRACTURE [None]
  - INFLAMMATION [None]
  - GAIT DISTURBANCE [None]
  - HEAD INJURY [None]
  - CONDITION AGGRAVATED [None]
  - DISORIENTATION [None]
  - FALL [None]
  - URTICARIA [None]
  - INTERVERTEBRAL DISC PROTRUSION [None]
  - UPPER LIMB FRACTURE [None]
